FAERS Safety Report 5581503-3 (Version None)
Quarter: 2008Q1

REPORT INFORMATION
  Report Type: 
  Country: None (occurrence: None)
  Receive Date: 20080104
  Receipt Date: 20071221
  Transmission Date: 20080703
  Serious: Yes (Other)
  Sender: FDA-Public Use
  Company Number: US-AMGEN-US258664

PATIENT
  Age: 68 Year
  Sex: Female

DRUGS (2)
  1. PROCRIT [Suspect]
     Indication: PREOPERATIVE CARE
     Route: 065
     Dates: start: 20071001, end: 20071221
  2. IRON [Concomitant]
     Route: 042
     Dates: start: 20071001

REACTIONS (1)
  - DRUG INEFFECTIVE [None]
